FAERS Safety Report 23576907 (Version 1)
Quarter: 2024Q1

REPORT INFORMATION
  Report Type: Spontaneous
  Country: US (occurrence: None)
  Receive Date: 20240228
  Receipt Date: 20240228
  Transmission Date: 20240409
  Serious: Yes (Death)
  Sender: FDA-Public Use
  Company Number: None

PATIENT
  Sex: Female

DRUGS (4)
  1. DOFETILIDE [Suspect]
     Active Substance: DOFETILIDE
     Indication: Atrial fibrillation
     Dosage: FREQUENCY : TWICE A DAY;?
     Route: 048
     Dates: start: 202112
  2. TADALAFIL [Concomitant]
  3. OPSUMIT [Concomitant]
  4. REMODULIN [Concomitant]
     Active Substance: TREPROSTINIL

REACTIONS (1)
  - Death [None]
